FAERS Safety Report 7885359-5 (Version None)
Quarter: 2011Q4

REPORT INFORMATION
  Report Type: 
  Country: None (occurrence: None)
  Receive Date: 20111102
  Receipt Date: 20111028
  Transmission Date: 20120403
  Serious: No
  Sender: FDA-Public Use
  Company Number: US-PFIZER INC-2011237940

PATIENT
  Age: 29 Year
  Sex: Female
  Weight: 61.7 kg

DRUGS (3)
  1. MEDROXYPROGESTERONE ACETATE [Suspect]
     Indication: CONTRACEPTION
     Dosage: 150 MG, EVERY 3 MONTHS
     Dates: start: 20110223
  2. MEDROXYPROGESTERONE ACETATE [Suspect]
     Dosage: UNK, EVERY 3 MONTHS
     Dates: start: 20110817
  3. MEDROXYPROGESTERONE ACETATE [Suspect]
     Dosage: UNK, EVERY 3 MONTHS
     Dates: start: 20110523

REACTIONS (2)
  - DRUG INEFFECTIVE [None]
  - UNINTENDED PREGNANCY [None]
